FAERS Safety Report 9174536 (Version 3)
Quarter: 2013Q2

REPORT INFORMATION
  Report Type: Spontaneous
  Country: US (occurrence: None)
  Receive Date: 20130313
  Receipt Date: 20130423
  Transmission Date: 20140414
  Serious: Yes (Hospitalization, Other)
  Sender: FDA-Public Use
  Company Number: JPI-P-030276

PATIENT
  Age: 35 Year
  Sex: Female

DRUGS (8)
  1. XYREM (500 MILLIGRAM/MILLILITERS, SOLUTION) (SODIUM OXYBATE) [Suspect]
     Indication: NARCOLEPSY
     Dosage: 4.5 GM (2.25 GM, 2 IN 1 D) ORAL
     Route: 048
     Dates: start: 20080806
  2. XYREM (500 MILLIGRAM/MILLILITERS, SOLUTION) (SODIUM OXYBATE) [Suspect]
     Indication: SOMNOLENCE
     Dosage: 4.5 GM (2.25 GM, 2 IN 1 D) ORAL
     Route: 048
     Dates: start: 20080806
  3. ALPRAZOLAM [Concomitant]
  4. OXYCODONE AND ACETAMINOPHEN [Concomitant]
  5. GLYBURIDE AND METFORMIN [Concomitant]
  6. GABAPENTIN [Concomitant]
  7. OMEPRAZOLE [Concomitant]
  8. MELOXICAM [Concomitant]

REACTIONS (3)
  - Unresponsive to stimuli [None]
  - Amnesia [None]
  - Depressed level of consciousness [None]
